FAERS Safety Report 13292803 (Version 1)
Quarter: 2017Q1

REPORT INFORMATION
  Report Type: Spontaneous
  Country: US (occurrence: US)
  Receive Date: 20170303
  Receipt Date: 20170303
  Transmission Date: 20170428
  Serious: No
  Sender: FDA-Public Use
  Company Number: US-PFIZER INC-2017047598

PATIENT
  Sex: Female

DRUGS (6)
  1. TOVIAZ [Suspect]
     Active Substance: FESOTERODINE FUMARATE
     Indication: INCONTINENCE
     Dosage: 8 MG, DAILY (QD)
     Dates: start: 20170123, end: 20170124
  2. VITAMIN B [Concomitant]
     Active Substance: VITAMIN B
     Dosage: UNK
  3. GLUCOSAMINE CHONDROITIN [Concomitant]
     Active Substance: CHONDROITIN SULFATE (BOVINE)\GLUCOSAMINE HYDROCHLORIDE
     Dosage: UNK
  4. DHA [Concomitant]
     Active Substance: DIETARY SUPPLEMENT
     Dosage: UNK
  5. LEXAPRO [Concomitant]
     Active Substance: ESCITALOPRAM OXALATE
     Dosage: 20 MG, UNK
  6. VITAMIN D3 [Concomitant]
     Active Substance: CHOLECALCIFEROL
     Dosage: UNK

REACTIONS (3)
  - Dry eye [Recovered/Resolved]
  - Dry mouth [Recovered/Resolved]
  - Eye disorder [Recovered/Resolved]

NARRATIVE: CASE EVENT DATE: 20170123
